FAERS Safety Report 17791320 (Version 1)
Quarter: 2020Q2

REPORT INFORMATION
  Report Type: Spontaneous
  Country: US (occurrence: US)
  Receive Date: 20200515
  Receipt Date: 20200515
  Transmission Date: 20200714
  Serious: No
  Sender: FDA-Public Use
  Company Number: None

PATIENT

DRUGS (1)
  1. JUNEL 1.5/30 [Suspect]
     Active Substance: ETHINYL ESTRADIOL\NORETHINDRONE ACETATE

REACTIONS (1)
  - Therapy non-responder [None]
